FAERS Safety Report 5416268-9 (Version None)
Quarter: 2007Q3

REPORT INFORMATION
  Report Type: 
  Country: None (occurrence: None)
  Receive Date: 20070718
  Receipt Date: 20070221
  Transmission Date: 20080115
  Serious: Yes (Hospitalization, Other)
  Sender: FDA-Public Use
  Company Number: 2007014240

PATIENT
  Age: 25 Year
  Sex: Male
  Weight: 61.2 kg

DRUGS (1)
  1. CELEBREX [Suspect]
     Indication: OSTEOARTHRITIS
     Dosage: (200 MG, 1-2 TIMES DAILY)
     Dates: start: 20011109, end: 20020612

REACTIONS (1)
  - MYOCARDIAL INFARCTION [None]
